FAERS Safety Report 13167765 (Version 1)
Quarter: 2017Q1

REPORT INFORMATION
  Report Type: Spontaneous
  Country: US (occurrence: US)
  Receive Date: 20170131
  Receipt Date: 20170131
  Transmission Date: 20170428
  Serious: Yes (Other)
  Sender: FDA-Public Use
  Company Number: US-SAGENTPRD-2016-US-000043

PATIENT
  Age: 40 Year
  Sex: Female

DRUGS (3)
  1. IFOSFAMIDE. [Concomitant]
     Active Substance: IFOSFAMIDE
  2. DOXORUBICIN HYDROCHLORIDE INJECTION, USP [Suspect]
     Active Substance: DOXORUBICIN HYDROCHLORIDE
  3. PEGFILGRASTIM [Concomitant]
     Active Substance: PEGFILGRASTIM

REACTIONS (1)
  - Febrile neutropenia [Unknown]
